FAERS Safety Report 9486779 (Version 5)
Quarter: 2014Q2

REPORT INFORMATION
  Report Type: Spontaneous
  Country: US (occurrence: US)
  Receive Date: 20130829
  Receipt Date: 20140507
  Transmission Date: 20141212
  Serious: Yes (Hospitalization)
  Sender: FDA-Public Use
  Company Number: US-B.I. PHARMACEUTICALS,INC./RIDGEFIELD-2013-BI-26379BP

PATIENT
  Age: 53 Year
  Sex: Female
  Weight: 68.04 kg

DRUGS (8)
  1. PRADAXA [Suspect]
     Indication: ANTICOAGULANT THERAPY
     Dosage: 300 MG
     Route: 065
     Dates: start: 20110801, end: 20110822
  2. PRADAXA [Suspect]
     Indication: MITRAL VALVE REPLACEMENT
  3. FUROSEMIDE [Concomitant]
     Dosage: 40 MG
     Route: 065
  4. KLOR-CON M20 [Concomitant]
     Dosage: 20 MEQ
     Route: 065
  5. SIMVASTATIN [Concomitant]
     Dosage: 40 MG
     Route: 065
  6. TRILIPIX [Concomitant]
     Dosage: 135 MG
     Route: 065
  7. OMEPRAZOLE [Concomitant]
     Route: 065
  8. METOPROLOL [Concomitant]
     Dosage: 100 MG
     Route: 065

REACTIONS (2)
  - Embolic stroke [Recovered/Resolved]
  - Wound haemorrhage [Unknown]
